FAERS Safety Report 11191700 (Version 1)
Quarter: 2015Q2

REPORT INFORMATION
  Report Type: Report from Study
  Country: US (occurrence: None)
  Receive Date: 20150603
  Receipt Date: 20150603
  Transmission Date: 20150821
  Serious: No
  Sender: FDA-Public Use
  Company Number: 2015TASUS000707

PATIENT
  Age: 27 Year
  Sex: Male
  Weight: 70.3 kg

DRUGS (1)
  1. HETLIOZ [Suspect]
     Active Substance: TASIMELTEON
     Indication: CIRCADIAN RHYTHM SLEEP DISORDER
     Route: 048
     Dates: start: 20150210

REACTIONS (4)
  - Nightmare [None]
  - Drug ineffective [None]
  - Somnolence [None]
  - Abnormal dreams [None]
